FAERS Safety Report 5392697-7 (Version None)
Quarter: 2007Q3

REPORT INFORMATION
  Report Type: 
  Country: None (occurrence: None)
  Receive Date: 20070720
  Receipt Date: 20070712
  Transmission Date: 20080115
  Serious: Yes (Hospitalization)
  Sender: FDA-Public Use
  Company Number: US-ABBOTT-07P-163-0374696-00

PATIENT
  Sex: Male
  Weight: 78.996 kg

DRUGS (18)
  1. TERAZOSIN HCL [Suspect]
     Indication: HYPERTENSION
     Route: 048
     Dates: start: 20020917, end: 20050613
  2. TERAZOSIN HCL [Suspect]
     Route: 048
  3. BLINDED THERAPY [Suspect]
     Indication: CORONARY ARTERY DISEASE
     Route: 048
     Dates: start: 20040917, end: 20050613
  4. BLINDED THERAPY [Suspect]
     Route: 048
     Dates: start: 20050802, end: 20061204
  5. LISINOPRIL [Suspect]
     Indication: HYPERTENSION
     Route: 048
     Dates: start: 20000411, end: 20050613
  6. ACETYLSALICYLIC ACID SRT [Concomitant]
     Indication: DRUG USE FOR UNKNOWN INDICATION
     Route: 048
     Dates: start: 19921031, end: 20050613
  7. ACETYLSALICYLIC ACID SRT [Concomitant]
  8. VITAMIN CAP [Concomitant]
     Indication: DRUG USE FOR UNKNOWN INDICATION
     Route: 048
     Dates: start: 19981110, end: 20050613
  9. VITAMIN CAP [Concomitant]
  10. LORAZEPAM [Concomitant]
     Indication: DRUG USE FOR UNKNOWN INDICATION
     Route: 048
     Dates: start: 20050101, end: 20050613
  11. LORAZEPAM [Concomitant]
  12. LANSOPRAZOLE [Concomitant]
     Indication: DRUG USE FOR UNKNOWN INDICATION
     Route: 048
     Dates: start: 20050408, end: 20050613
  13. LANSOPRAZOLE [Concomitant]
  14. FLUOXETINE HYDROCHLORIDE [Concomitant]
     Indication: DRUG USE FOR UNKNOWN INDICATION
     Route: 048
     Dates: start: 20050408, end: 20050613
  15. FLUOXETINE HYDROCHLORIDE [Concomitant]
  16. METOPROLOL TARTRATE [Concomitant]
     Indication: DRUG USE FOR UNKNOWN INDICATION
     Route: 048
     Dates: start: 19921031, end: 20050613
  17. METOPROLOL TARTRATE [Concomitant]
  18. ATORVASTATIN CALCIUM [Concomitant]
     Indication: DRUG USE FOR UNKNOWN INDICATION
     Route: 048
     Dates: start: 20040820, end: 20040916

REACTIONS (2)
  - ANGIOEDEMA [None]
  - CONSTIPATION [None]
